FAERS Safety Report 13213957 (Version 1)
Quarter: 2017Q1

REPORT INFORMATION
  Report Type: Spontaneous
  Country: US (occurrence: US)
  Receive Date: 20170210
  Receipt Date: 20170210
  Transmission Date: 20170428
  Serious: Yes (Death)
  Sender: FDA-Public Use
  Company Number: US-VIFOR (INTERNATIONAL) INC.-VIT-2016-07468

PATIENT
  Age: 61 Year
  Sex: Female

DRUGS (16)
  1. ASCORBIC ACID/NICOTINAMIDE/PYRIDOXINE HYDROCHLORIDE/RIBOFLAVIN SODIUM PHOSPHATE/THIAMINE HYDROCHLORI [Concomitant]
  2. TEMAZEPAM. [Concomitant]
     Active Substance: TEMAZEPAM
  3. DOCUSATE SODIUM. [Concomitant]
     Active Substance: DOCUSATE SODIUM
  4. NORCO [Concomitant]
     Active Substance: ACETAMINOPHEN\HYDROCODONE BITARTRATE
  5. KEPPRA [Concomitant]
     Active Substance: LEVETIRACETAM
  6. EPOGEN [Concomitant]
     Active Substance: ERYTHROPOIETIN
  7. ADVAIR DISKUS [Concomitant]
     Active Substance: FLUTICASONE PROPIONATE\SALMETEROL XINAFOATE
  8. MIRAPEX [Concomitant]
     Active Substance: PRAMIPEXOLE DIHYDROCHLORIDE
  9. CARNITINE [Concomitant]
     Active Substance: CARNITINE
  10. RENAGEL [Concomitant]
     Active Substance: SEVELAMER HYDROCHLORIDE
  11. SALBUTAMOL SULFATE [Concomitant]
     Active Substance: ALBUTEROL SULFATE
  12. SENSIPAR [Concomitant]
     Active Substance: CINACALCET HYDROCHLORIDE
  13. ATROVENT HFA [Concomitant]
     Active Substance: IPRATROPIUM BROMIDE
  14. LEVOTHYROXINE SODIUM. [Concomitant]
     Active Substance: LEVOTHYROXINE SODIUM
  15. WARFARIN SODIUM. [Concomitant]
     Active Substance: WARFARIN SODIUM
  16. VELTASSA [Suspect]
     Active Substance: PATIROMER
     Indication: HYPERKALAEMIA
     Route: 048
     Dates: start: 20160909

REACTIONS (1)
  - Death [Fatal]

NARRATIVE: CASE EVENT DATE: 20161025
